FAERS Safety Report 14923775 (Version 1)
Quarter: 2018Q2

REPORT INFORMATION
  Report Type: Report from Study
  Country: AU (occurrence: AU)
  Receive Date: 20180522
  Receipt Date: 20180522
  Transmission Date: 20180711
  Serious: Yes (Death, Hospitalization, Other)
  Sender: FDA-Public Use
  Company Number: AU-MYLANLABS-2018M1034303

PATIENT
  Age: 64 Year
  Sex: Male

DRUGS (1)
  1. CLOZARIL [Suspect]
     Active Substance: CLOZAPINE
     Indication: SCHIZOPHRENIA
     Dosage: 350 MG, UNK
     Route: 048
     Dates: start: 20000629

REACTIONS (7)
  - Hospitalisation [Unknown]
  - Cardiac disorder [Unknown]
  - Mental impairment [Unknown]
  - Death [Fatal]
  - Diabetes mellitus [Unknown]
  - Living in residential institution [Unknown]
  - Obesity [Unknown]

NARRATIVE: CASE EVENT DATE: 2017
